FAERS Safety Report 8496395-2 (Version None)
Quarter: 2012Q3

REPORT INFORMATION
  Report Type: 
  Country: None (occurrence: None)
  Receive Date: 20120709
  Receipt Date: 20120210
  Transmission Date: 20120928
  Serious: No
  Sender: FDA-Public Use
  Company Number: US-B.I. PHARMACEUTICALS,INC./RIDGEFIELD-2012-BP-01124BP

PATIENT

DRUGS (1)
  1. TRADJENTA [Suspect]

REACTIONS (3)
  - VOMITING [None]
  - DEHYDRATION [None]
  - NAUSEA [None]
